FAERS Safety Report 12785811 (Version 1)
Quarter: 2016Q3

REPORT INFORMATION
  Report Type: Spontaneous
  Country: US (occurrence: US)
  Receive Date: 20160927
  Receipt Date: 20160927
  Transmission Date: 20161109
  Serious: No
  Sender: FDA-Public Use
  Company Number: US-FRI-1000083172

PATIENT
  Sex: Male

DRUGS (7)
  1. ALIGN PROBIOTIC [Concomitant]
     Indication: CONSTIPATION
     Dosage: AS NEEDED
     Route: 048
  2. ADVIL [Concomitant]
     Active Substance: IBUPROFEN
     Indication: BACK PAIN
     Dosage: AS NEEDED
     Route: 048
  3. LINZESS [Suspect]
     Active Substance: LINACLOTIDE
     Dosage: 145 ?G, UNK
     Route: 048
     Dates: start: 201506
  4. LINZESS [Suspect]
     Active Substance: LINACLOTIDE
     Indication: IRRITABLE BOWEL SYNDROME
     Dosage: 145 ?G, QD
     Route: 048
     Dates: start: 201506
  5. STOOL SOFTENER [Concomitant]
     Active Substance: DOCUSATE CALCIUM
     Indication: CONSTIPATION
     Dosage: AS NEEDED
     Route: 048
  6. DULCOLAX NOS [Concomitant]
     Active Substance: BISACODYL OR DOCUSATE SODIUM
     Indication: CONSTIPATION
     Dosage: AS NEEDED
     Route: 065
  7. CITRUCEL [Concomitant]
     Active Substance: METHYLCELLULOSE (4000 MPA.S)
     Indication: CONSTIPATION
     Dosage: AS NEEDED
     Route: 048

REACTIONS (3)
  - Paraesthesia [Not Recovered/Not Resolved]
  - Off label use [Not Recovered/Not Resolved]
  - Diarrhoea [Recovered/Resolved]

NARRATIVE: CASE EVENT DATE: 201506
